FAERS Safety Report 4724314-0 (Version None)
Quarter: 2005Q3

REPORT INFORMATION
  Report Type: 
  Country: None (occurrence: None)
  Receive Date: 20050722
  Receipt Date: 20050722
  Transmission Date: 20060218
  Serious: Yes (Other)
  Sender: FDA-Public Use
  Company Number: None

PATIENT
  Sex: Female
  Weight: 72.5755 kg

DRUGS (4)
  1. SYNTHROID [Suspect]
     Indication: HYPOTHYROIDISM
     Dosage: ONE PO DAILY
     Route: 048
     Dates: end: 20050501
  2. PREVACID [Concomitant]
  3. DILTIAZEM [Concomitant]
  4. DYAZIDE [Concomitant]

REACTIONS (1)
  - PRURITUS [None]
